FAERS Safety Report 6251692-6 (Version None)
Quarter: 2009Q2

REPORT INFORMATION
  Report Type: 
  Country: None (occurrence: None)
  Receive Date: 20090625
  Receipt Date: 20090625
  Transmission Date: 20091009
  Serious: No
  Sender: FDA-Public Use
  Company Number: None

PATIENT

DRUGS (1)
  1. ARTHROTEC [Suspect]
     Dosage: 75 MG

REACTIONS (5)
  - ARTHRALGIA [None]
  - DRUG HYPERSENSITIVITY [None]
  - JOINT SWELLING [None]
  - OEDEMA PERIPHERAL [None]
  - SWELLING [None]
